FAERS Safety Report 22525517 (Version 1)
Quarter: 2023Q2

REPORT INFORMATION
  Report Type: Spontaneous
  Country: US (occurrence: US)
  Receive Date: 20230606
  Receipt Date: 20230606
  Transmission Date: 20230722
  Serious: No
  Sender: FDA-Public Use
  Company Number: US-BAYER-2023A070794

PATIENT
  Age: 21 Year
  Sex: Female

DRUGS (3)
  1. KYLEENA [Suspect]
     Active Substance: LEVONORGESTREL
     Indication: Dysmenorrhoea
     Dosage: 17.5?G/DAY
     Route: 015
     Dates: start: 20230517, end: 20230517
  2. KYLEENA [Suspect]
     Active Substance: LEVONORGESTREL
     Indication: Pelvic pain
  3. KYLEENA [Suspect]
     Active Substance: LEVONORGESTREL
     Indication: Heavy menstrual bleeding

REACTIONS (4)
  - Complication of device insertion [None]
  - Device deployment issue [None]
  - Off label use of device [None]
  - Device use issue [None]
